FAERS Safety Report 12681887 (Version 1)
Quarter: 2016Q3

REPORT INFORMATION
  Report Type: Spontaneous
  Country: FR (occurrence: FR)
  Receive Date: 20160824
  Receipt Date: 20160824
  Transmission Date: 20161109
  Serious: Yes (Hospitalization)
  Sender: FDA-Public Use
  Company Number: FR-MYLANLABS-2016M1034474

PATIENT

DRUGS (10)
  1. VANCOMYCIN MYLAN [Suspect]
     Active Substance: VANCOMYCIN
     Indication: POSTOPERATIVE WOUND INFECTION
     Dosage: 1500 MG, BID
     Route: 042
     Dates: start: 20141120, end: 20141220
  2. DOMPERIDONE ARROW                  /00498201/ [Suspect]
     Active Substance: DOMPERIDONE
     Indication: PROPHYLAXIS OF NAUSEA AND VOMITING
     Dosage: 10 TO 30 MG DAILY
     Route: 048
     Dates: start: 20141122, end: 20141128
  3. DOLIPRANE [Suspect]
     Active Substance: ACETAMINOPHEN
     Indication: PAIN PROPHYLAXIS
     Dosage: 1000 MG, QID
     Route: 048
     Dates: start: 20141121, end: 20141127
  4. INEXIUM                            /01479302/ [Suspect]
     Active Substance: ESOMEPRAZOLE MAGNESIUM
     Indication: PRODUCT USED FOR UNKNOWN INDICATION
     Dosage: 20 MG, QD
     Route: 048
     Dates: start: 20141121, end: 20141124
  5. ATARAX [Suspect]
     Active Substance: HYDROXYZINE\HYDROXYZINE HYDROCHLORIDE
     Indication: PRODUCT USED FOR UNKNOWN INDICATION
     Dosage: 25 MG, QD
     Route: 048
     Dates: start: 20141119, end: 20141119
  6. AMIKACIN MYLAN [Suspect]
     Active Substance: AMIKACIN
     Indication: POSTOPERATIVE WOUND INFECTION
     Dosage: 2 G, QD
     Route: 042
     Dates: start: 20141120, end: 20141123
  7. LOVENOX [Suspect]
     Active Substance: ENOXAPARIN SODIUM
     Indication: THROMBOSIS PROPHYLAXIS
     Dosage: 4000 IU, QD
     Route: 058
     Dates: start: 20141121
  8. OXYNORMORO [Suspect]
     Active Substance: OXYCODONE
     Indication: PAIN PROPHYLAXIS
     Dosage: 5 MG, QD
     Route: 048
     Dates: start: 20141120, end: 20141120
  9. ACUPAN [Suspect]
     Active Substance: NEFOPAM HYDROCHLORIDE
     Indication: PAIN PROPHYLAXIS
     Dosage: 20 MG, QID
     Route: 048
     Dates: start: 20141121, end: 20141122
  10. MYLAN-CIPROFLOXACIN [Suspect]
     Active Substance: CIPROFLOXACIN
     Indication: POSTOPERATIVE WOUND INFECTION
     Dosage: 750 MG, BID
     Route: 048
     Dates: start: 20141120, end: 20141220

REACTIONS (4)
  - Rash erythematous [Recovering/Resolving]
  - Nausea [Recovering/Resolving]
  - Drug reaction with eosinophilia and systemic symptoms [Recovering/Resolving]
  - Oedema peripheral [Recovering/Resolving]

NARRATIVE: CASE EVENT DATE: 20141121
